FAERS Safety Report 5203351-6 (Version None)
Quarter: 2007Q1

REPORT INFORMATION
  Report Type: 
  Country: None (occurrence: None)
  Receive Date: 20070110
  Receipt Date: 20061227
  Transmission Date: 20070707
  Serious: Yes (Other)
  Sender: FDA-Public Use
  Company Number: FR-JNJFOC-20070101192

PATIENT
  Age: 88 Year
  Sex: Female

DRUGS (6)
  1. TRAMADOL HCL [Suspect]
     Dosage: 200 MG IN THE MORNING AND 150 MG AT NIGHT
     Route: 048
  2. TRAMADOL HCL [Suspect]
     Indication: MUSCULOSKELETAL DISCOMFORT
     Route: 048
  3. PREVISCAN [Concomitant]
     Indication: ATRIAL FIBRILLATION
     Route: 065
  4. TRIATEC [Concomitant]
     Indication: ATRIAL FIBRILLATION
     Route: 065
  5. LASIX [Concomitant]
     Indication: ATRIAL FIBRILLATION
     Route: 065
  6. ARICEPT [Concomitant]
     Indication: DEMENTIA ALZHEIMER'S TYPE
     Route: 065

REACTIONS (1)
  - HYPOGLYCAEMIA [None]
